FAERS Safety Report 7448579-X (Version None)
Quarter: 2011Q2

REPORT INFORMATION
  Report Type: 
  Country: None (occurrence: None)
  Receive Date: 20110429
  Receipt Date: 20100603
  Transmission Date: 20111010
  Serious: No
  Sender: FDA-Public Use
  Company Number: US-ASTRAZENECA-2010SE25803

PATIENT
  Age: 59 Year
  Sex: Female
  Weight: 71.7 kg

DRUGS (3)
  1. NEXIUM [Suspect]
     Route: 048
     Dates: start: 20100601
  2. ATACAND [Concomitant]
     Indication: HYPERTENSION
  3. NEXIUM [Suspect]
     Indication: GASTROOESOPHAGEAL REFLUX DISEASE
     Route: 048
     Dates: start: 20050101, end: 20100601

REACTIONS (2)
  - COUGH [None]
  - SENSATION OF FOREIGN BODY [None]
